FAERS Safety Report 20290489 (Version 1)
Quarter: 2022Q1

REPORT INFORMATION
  Report Type: Spontaneous
  Country: US (occurrence: US)
  Receive Date: 20220104
  Receipt Date: 20220104
  Transmission Date: 20220424
  Serious: Yes (Other)
  Sender: FDA-Public Use
  Company Number: US-BAYER-2021A276557

PATIENT
  Age: 34 Year
  Sex: Male

DRUGS (3)
  1. KOGENATE FS [Suspect]
     Active Substance: ANTIHEMOPHILIC FACTOR, HUMAN RECOMBINANT
     Dosage: 6750 IU
  2. KOGENATE FS [Suspect]
     Active Substance: ANTIHEMOPHILIC FACTOR, HUMAN RECOMBINANT
     Dosage: 2 DF,  FOR THE FELL AND BRUISING TREATMENT
  3. KOGENATE FS [Suspect]
     Active Substance: ANTIHEMOPHILIC FACTOR, HUMAN RECOMBINANT
     Dosage: 2 DF,  FOR THE DISLOCATION OF LEFT PINKY TREATMENT

REACTIONS (4)
  - Haemorrhage [Recovered/Resolved]
  - Joint dislocation [None]
  - Fall [None]
  - Contusion [None]

NARRATIVE: CASE EVENT DATE: 20211223
